FAERS Safety Report 8379636-1 (Version None)
Quarter: 2012Q2

REPORT INFORMATION
  Report Type: 
  Country: None (occurrence: None)
  Receive Date: 20120523
  Receipt Date: 20120515
  Transmission Date: 20120825
  Serious: Yes (Other)
  Sender: FDA-Public Use
  Company Number: US-BAYER-2012-049329

PATIENT
  Age: 33 Year
  Sex: Female
  Weight: 86 kg

DRUGS (12)
  1. SOLU-MEDROL [Concomitant]
  2. NEURONTIN [Concomitant]
     Dosage: 1200 MG, TID
  3. VESICARE [Concomitant]
     Indication: HYPERTONIC BLADDER
  4. IBUPROFEN [Concomitant]
  5. DOXYCYCLINE [Concomitant]
     Dosage: 100 MG, UNK
  6. CYMBALTA [Concomitant]
  7. NUVIGIL [Concomitant]
  8. TYSABRI [Concomitant]
     Indication: MULTIPLE SCLEROSIS
     Dosage: EVERY FOUR WEEKS
  9. YASMIN [Suspect]
     Indication: MENSTRUATION IRREGULAR
  10. KLONOPIN [Concomitant]
     Dosage: 0.25-0.5 MG
  11. PROVIGIL [Concomitant]
     Dosage: 10 MG, OM
  12. GABAPENTIN [Concomitant]

REACTIONS (1)
  - DEEP VEIN THROMBOSIS [None]
